FAERS Safety Report 7391855-X (Version None)
Quarter: 2011Q2

REPORT INFORMATION
  Report Type: 
  Country: None (occurrence: None)
  Receive Date: 20110404
  Receipt Date: 20110331
  Transmission Date: 20111010
  Serious: Yes (Death, Other)
  Sender: FDA-Public Use
  Company Number: FR-SANOFI-AVENTIS-2011SA017923

PATIENT
  Age: 42 Year
  Sex: Male

DRUGS (1)
  1. TAXOTERE [Suspect]
     Indication: OESOPHAGEAL CARCINOMA
     Dates: start: 20101210, end: 20101210

REACTIONS (10)
  - GENERALISED OEDEMA [None]
  - NEUROPATHY PERIPHERAL [None]
  - NAIL TOXICITY [None]
  - LEUKOCYTOSIS [None]
  - ALOPECIA [None]
  - PERICARDITIS CONSTRICTIVE [None]
  - RADIATION MUCOSITIS [None]
  - STAPHYLOCOCCAL BACTERAEMIA [None]
  - NEUTROPENIA [None]
  - PALMAR-PLANTAR ERYTHRODYSAESTHESIA SYNDROME [None]
